FAERS Safety Report 9949366 (Version 2)
Quarter: 2014Q2

REPORT INFORMATION
  Report Type: Spontaneous
  Country: DE (occurrence: DE)
  Receive Date: 20140304
  Receipt Date: 20140415
  Transmission Date: 20141212
  Serious: Yes (Hospitalization, Other)
  Sender: FDA-Public Use
  Company Number: DE-AMGEN-DEUSP2014013890

PATIENT
  Age: 55 Year
  Sex: Male
  Weight: 72 kg

DRUGS (6)
  1. MIMPARA [Suspect]
     Indication: HYPERPARATHYROIDISM SECONDARY
     Dosage: 90 MG, QD
     Route: 048
     Dates: start: 201208, end: 20130828
  2. CALCIUMACETAT NEFRO [Concomitant]
     Dosage: UNK
     Route: 048
     Dates: start: 20110926
  3. DREISAVIT                          /00844801/ [Concomitant]
     Dosage: UNK
     Route: 048
     Dates: start: 20080924
  4. FERRLECIT                          /00023541/ [Concomitant]
     Dosage: UNK
     Route: 042
     Dates: start: 20130515
  5. RENAGEL                            /01459901/ [Concomitant]
     Dosage: UNK
     Route: 048
     Dates: start: 20070507
  6. ZINK SANDOZ [Concomitant]
     Dosage: 10 MG, UNK
     Route: 048
     Dates: start: 20100906

REACTIONS (5)
  - Epilepsy [Unknown]
  - Fall [Unknown]
  - Facial bones fracture [Unknown]
  - Periorbital haematoma [Unknown]
  - Diplopia [Unknown]
